FAERS Safety Report 10628712 (Version 1)
Quarter: 2014Q4

REPORT INFORMATION
  Report Type: Spontaneous
  Country: US (occurrence: US)
  Receive Date: 20141205
  Receipt Date: 20141205
  Transmission Date: 20150529
  Serious: No
  Sender: FDA-Public Use
  Company Number: US-BRISTOL-MYERS SQUIBB COMPANY-21562780

PATIENT
  Age: 71 Year
  Sex: Female

DRUGS (2)
  1. ABILIFY [Suspect]
     Active Substance: ARIPIPRAZOLE
     Indication: MAJOR DEPRESSION
     Dosage: 15MG AND 10 MG
     Dates: start: 2009
  2. PAXIL CR [Concomitant]
     Active Substance: PAROXETINE HYDROCHLORIDE

REACTIONS (1)
  - Tardive dyskinesia [Not Recovered/Not Resolved]
